FAERS Safety Report 13170437 (Version 8)
Quarter: 2019Q4

REPORT INFORMATION
  Report Type: Report from Study
  Country: US (occurrence: US)
  Receive Date: 20170201
  Receipt Date: 20191101
  Transmission Date: 20200122
  Serious: Yes (Life-Threatening, Hospitalization, Other)
  Sender: FDA-Public Use
  Company Number: PHHY2017US013775

PATIENT
  Age: 27 Year
  Sex: Female
  Weight: 110.1 kg

DRUGS (2)
  1. HUMULIN NOS [Concomitant]
     Active Substance: INSULIN HUMAN
     Indication: DIABETES MELLITUS
     Dosage: 120 U (80 U IN AM AND 40 IN PM), UNK
     Route: 065
     Dates: start: 20160104
  2. GILENYA [Suspect]
     Active Substance: FINGOLIMOD HYDROCHLORIDE
     Indication: MULTIPLE SCLEROSIS
     Dosage: 0.5 MG, QD
     Route: 048
     Dates: start: 20160112

REACTIONS (14)
  - Urinary tract infection [Unknown]
  - Nausea [Recovered/Resolved]
  - Subcutaneous abscess [Recovered/Resolved]
  - Sepsis [Recovered/Resolved]
  - Muscle spasms [Unknown]
  - Vision blurred [Unknown]
  - Pain in extremity [Unknown]
  - Injection site cellulitis [Recovered/Resolved]
  - Vomiting [Recovered/Resolved]
  - Injection site pain [Recovered/Resolved]
  - Injection site erythema [Recovered/Resolved]
  - Blood lactic acid decreased [Unknown]
  - White blood cell disorder [Unknown]
  - Blood alkaline phosphatase increased [Unknown]

NARRATIVE: CASE EVENT DATE: 20160729
